FAERS Safety Report 12223935 (Version 1)
Quarter: 2016Q1

REPORT INFORMATION
  Report Type: Spontaneous
  Country: GB (occurrence: GB)
  Receive Date: 20160330
  Receipt Date: 20160330
  Transmission Date: 20160526
  Serious: Yes (Other)
  Sender: FDA-Public Use
  Company Number: ALCN2016GB002097

PATIENT
  Age: 86 Year
  Sex: Female
  Weight: 55 kg

DRUGS (1)
  1. TRAVATAN [Suspect]
     Active Substance: TRAVOPROST
     Indication: GLAUCOMA
     Dosage: UNK
     Route: 047
     Dates: start: 20150824, end: 20160309

REACTIONS (4)
  - Periorbital oedema [Unknown]
  - Pigmentation disorder [Unknown]
  - Periorbital fat atrophy [Unknown]
  - Conjunctival hyperaemia [Unknown]

NARRATIVE: CASE EVENT DATE: 20151110
